FAERS Safety Report 5971344-7 (Version None)
Quarter: 2008Q4

REPORT INFORMATION
  Report Type: 
  Country: None (occurrence: None)
  Receive Date: 20081128
  Receipt Date: 20081121
  Transmission Date: 20090506
  Serious: Yes (Hospitalization, Other)
  Sender: FDA-Public Use
  Company Number: CA-PFIZER INC-2008100130

PATIENT
  Sex: Male
  Weight: 84.3 kg

DRUGS (13)
  1. SU-011,248 [Suspect]
     Indication: NEOPLASM MALIGNANT
     Route: 048
     Dates: start: 20081007
  2. ALIMTA [Suspect]
     Indication: NEOPLASM MALIGNANT
     Route: 042
     Dates: start: 20081007
  3. CISPLATIN [Suspect]
     Indication: NEOPLASM MALIGNANT
     Dates: start: 20081007
  4. TYLENOL (CAPLET) [Concomitant]
     Indication: PAIN IN JAW
     Dates: start: 20080901
  5. FOLIC ACID [Concomitant]
     Indication: PROPHYLAXIS
     Dates: start: 20081003
  6. VITAMIN B-12 [Concomitant]
     Indication: PROPHYLAXIS
     Dates: start: 20081007
  7. GRAVOL TAB [Concomitant]
     Indication: NAUSEA
     Dates: start: 20081009
  8. PROCHLORPERAZINE [Concomitant]
     Indication: NAUSEA
     Dates: start: 20081007
  9. PANTOLAX [Concomitant]
     Indication: PROPHYLAXIS AGAINST GASTROINTESTINAL ULCER
     Dates: start: 20081009
  10. TRIATEC [Concomitant]
     Indication: BACK PAIN
     Dates: start: 20081118
  11. NAPROSYN [Concomitant]
     Indication: BACK PAIN
     Dates: start: 20081117
  12. SENOKOT [Concomitant]
     Indication: CONSTIPATION
     Dosage: TEXT:1-2 TABS
     Dates: start: 20081119
  13. COLACE [Concomitant]
     Indication: CONSTIPATION
     Dosage: TEXT:1-2 TABS
     Dates: start: 20081119

REACTIONS (2)
  - LACTIC ACIDOSIS [None]
  - PANCYTOPENIA [None]
